FAERS Safety Report 24935623 (Version 1)
Quarter: 2025Q1

REPORT INFORMATION
  Report Type: Report from Study
  Country: US (occurrence: US)
  Receive Date: 20250206
  Receipt Date: 20250206
  Transmission Date: 20250408
  Serious: Yes (Hospitalization, Other)
  Sender: EXELIXIS
  Company Number: US-EXELIXIS-CABO-24079619

PATIENT
  Sex: Female

DRUGS (1)
  1. CABOMETYX [Suspect]
     Active Substance: CABOZANTINIB S-MALATE
     Indication: Metastases to central nervous system
     Dosage: 60 MG, QD
     Route: 048

REACTIONS (8)
  - Blood pressure increased [Unknown]
  - Stomatitis [Unknown]
  - Radiotherapy [Unknown]
  - Weight decreased [Unknown]
  - Diarrhoea [Recovering/Resolving]
  - Staphylococcal skin infection [Unknown]
  - Dry mouth [Unknown]
  - Off label use [Unknown]
